FAERS Safety Report 5803497-5 (Version None)
Quarter: 2008Q3

REPORT INFORMATION
  Report Type: 
  Country: None (occurrence: None)
  Receive Date: 20080708
  Receipt Date: 20080701
  Transmission Date: 20090109
  Serious: Yes (Hospitalization)
  Sender: FDA-Public Use
  Company Number: JP-SANOFI-SYNTHELABO-A01200803143

PATIENT
  Sex: Male

DRUGS (7)
  1. AVASTIN [Suspect]
     Route: 041
     Dates: start: 20080303, end: 20080303
  2. ISOVORIN [Suspect]
     Route: 041
     Dates: start: 20080303, end: 20080303
  3. FLUOROURACIL [Suspect]
     Route: 042
     Dates: start: 20080303, end: 20080305
  4. DEXART [Concomitant]
     Dosage: UNK
     Dates: start: 20070124, end: 20080303
  5. ELPLAT [Suspect]
     Indication: COLON CANCER METASTATIC
     Route: 041
     Dates: start: 20080303, end: 20080303
  6. KYTRIL [Concomitant]
     Dosage: UNK
     Dates: start: 20070124, end: 20080303
  7. DECADRON [Concomitant]
     Dosage: UNK
     Dates: start: 20070308, end: 20080303

REACTIONS (7)
  - ALANINE AMINOTRANSFERASE INCREASED [None]
  - ASPARTATE AMINOTRANSFERASE INCREASED [None]
  - BLOOD ALKALINE PHOSPHATASE INCREASED [None]
  - GASTROINTESTINAL PERFORATION [None]
  - NAIL DISORDER [None]
  - NAUSEA [None]
  - NEUTROPHIL COUNT DECREASED [None]
